FAERS Safety Report 12971627 (Version 1)
Quarter: 2016Q4

REPORT INFORMATION
  Report Type: Spontaneous
  Country: PL (occurrence: PL)
  Receive Date: 20161123
  Receipt Date: 20161123
  Transmission Date: 20170207
  Serious: Yes (Other)
  Sender: FDA-Public Use
  Company Number: PL-TAKEDA-2016TUS020801

PATIENT
  Age: 37 Year
  Sex: Female

DRUGS (3)
  1. OXYCEL [Suspect]
     Active Substance: CELLULOSE, OXIDIZED
     Indication: HAEMOSTASIS
     Dosage: UNK
     Route: 065
  2. TACHOSIL [Suspect]
     Active Substance: FIBRINOGEN HUMAN\THROMBIN HUMAN
     Indication: TISSUE SEALING
     Dosage: UNK
     Route: 065
  3. SPONGOSTAN [Suspect]
     Active Substance: GELATIN
     Indication: HAEMOSTASIS
     Dosage: UNK
     Route: 065

REACTIONS (4)
  - Swelling face [Recovering/Resolving]
  - Pruritus [Recovering/Resolving]
  - Off label use [Unknown]
  - Meningitis [Unknown]
